FAERS Safety Report 7586356-X (Version None)
Quarter: 2011Q2

REPORT INFORMATION
  Report Type: 
  Country: None (occurrence: None)
  Receive Date: 20110630
  Receipt Date: 20110630
  Transmission Date: 20111010
  Serious: Yes (Hospitalization)
  Sender: FDA-Public Use
  Company Number: None

PATIENT
  Sex: Female
  Weight: 78.02 kg

DRUGS (1)
  1. PEMETREXED [Suspect]
     Dosage: 940 MG

REACTIONS (16)
  - BLOOD PRESSURE SYSTOLIC INCREASED [None]
  - BODY TEMPERATURE DECREASED [None]
  - CERVIX CARCINOMA STAGE IV [None]
  - CHEST PAIN [None]
  - HAEMATOCRIT DECREASED [None]
  - BLOOD UREA INCREASED [None]
  - DISEASE PROGRESSION [None]
  - DYSARTHRIA [None]
  - BLOOD GLUCOSE INCREASED [None]
  - BLOOD CALCIUM DECREASED [None]
  - BLOOD CHLORIDE INCREASED [None]
  - HYPOAESTHESIA [None]
  - BLOOD CREATININE INCREASED [None]
  - HAEMOGLOBIN DECREASED [None]
  - PLATELET COUNT DECREASED [None]
  - BLOOD ALBUMIN DECREASED [None]
